FAERS Safety Report 12711113 (Version 1)
Quarter: 2016Q3

REPORT INFORMATION
  Report Type: Spontaneous
  Country: US (occurrence: US)
  Receive Date: 20160902
  Receipt Date: 20160902
  Transmission Date: 20161109
  Serious: No
  Sender: FDA-Public Use
  Company Number: US-JNJFOC-20160818891

PATIENT
  Age: 75 Year
  Sex: Female
  Weight: 58.51 kg

DRUGS (1)
  1. INVOKANA [Suspect]
     Active Substance: CANAGLIFLOZIN
     Indication: TYPE 2 DIABETES MELLITUS
     Dosage: IN THE MORNING.
     Route: 048
     Dates: start: 20160818

REACTIONS (3)
  - Thirst [Not Recovered/Not Resolved]
  - Weight decreased [Unknown]
  - Urine output increased [Not Recovered/Not Resolved]

NARRATIVE: CASE EVENT DATE: 201608
